FAERS Safety Report 4530231-1 (Version None)
Quarter: 2004Q4

REPORT INFORMATION
  Report Type: 
  Country: None (occurrence: None)
  Receive Date: 20041215
  Receipt Date: 20041129
  Transmission Date: 20050328
  Serious: Yes (Other)
  Sender: FDA-Public Use
  Company Number: 8007068

PATIENT
  Age: 57 Year
  Sex: Female
  Weight: 80 kg

DRUGS (3)
  1. KEPPRA [Suspect]
     Indication: EPILEPSY
     Dosage: 750 MG /D PO
     Route: 048
     Dates: start: 20040619
  2. KEPPRA [Suspect]
     Indication: EPILEPSY
     Dosage: 1 G /D PO
     Route: 048
  3. PHENOBARBITAL TAB [Concomitant]

REACTIONS (8)
  - ASTHENIA [None]
  - CONVULSION [None]
  - HYPOKALAEMIA [None]
  - JUGULAR VEIN DISTENSION [None]
  - LOSS OF CONSCIOUSNESS [None]
  - MUSCLE CRAMP [None]
  - RESUSCITATION [None]
  - SYNCOPE [None]
